FAERS Safety Report 19613584 (Version 1)
Quarter: 2021Q3

REPORT INFORMATION
  Report Type: Spontaneous
  Country: US (occurrence: US)
  Receive Date: 20210726
  Receipt Date: 20210726
  Transmission Date: 20211014
  Serious: Yes (Hospitalization)
  Sender: FDA-Public Use
  Company Number: None

PATIENT
  Age: 16 Year
  Sex: Female

DRUGS (1)
  1. DESVENLAFAXINE 50MG [Suspect]
     Active Substance: DESVENLAFAXINE
     Dates: start: 20201118, end: 20201218

REACTIONS (2)
  - Therapy non-responder [None]
  - Depression [None]

NARRATIVE: CASE EVENT DATE: 20201203
